FAERS Safety Report 25314416 (Version 1)
Quarter: 2025Q2

REPORT INFORMATION
  Report Type: Report from Study
  Country: GB (occurrence: GB)
  Receive Date: 20250514
  Receipt Date: 20250514
  Transmission Date: 20250716
  Serious: Yes (Other)
  Sender: SANDOZ
  Company Number: GB-SANDOZ-SDZ2025GB031752

PATIENT
  Sex: Female

DRUGS (1)
  1. OMNITROPE [Suspect]
     Active Substance: SOMATROPIN
     Indication: Hyperpituitarism
     Dosage: 0.2 MG, QD (OMNITROPE SUREPAL 5 5MG/1.5ML SOLUTION FOR INJECTION CARTRIDGES (SANDOZ LTD) 5 CARTRIDGE
     Route: 058
     Dates: start: 20230525

REACTIONS (2)
  - Brain neoplasm [Unknown]
  - Cerebrovascular accident [Unknown]
